FAERS Safety Report 13577840 (Version 2)
Quarter: 2017Q2

REPORT INFORMATION
  Report Type: Spontaneous
  Country: TH (occurrence: TH)
  Receive Date: 20170524
  Receipt Date: 20170525
  Transmission Date: 20170830
  Serious: Yes (Other)
  Sender: FDA-Public Use
  Company Number: TH-ASTELLAS-2017US020301

PATIENT
  Age: 54 Year
  Sex: Female

DRUGS (6)
  1. VFEND [Suspect]
     Active Substance: VORICONAZOLE
     Indication: ASPERGILLUS INFECTION
     Route: 048
  2. VFEND [Suspect]
     Active Substance: VORICONAZOLE
     Route: 042
     Dates: start: 20170427
  3. VFEND [Suspect]
     Active Substance: VORICONAZOLE
     Route: 042
  4. AMBISOME [Suspect]
     Active Substance: AMPHOTERICIN B
     Indication: ASPERGILLUS INFECTION
     Route: 042
  5. VFEND [Suspect]
     Active Substance: VORICONAZOLE
     Route: 048
     Dates: start: 20170411, end: 20170417
  6. AMBISOME [Suspect]
     Active Substance: AMPHOTERICIN B
     Route: 042

REACTIONS (5)
  - Aspartate aminotransferase increased [Recovering/Resolving]
  - Klebsiella sepsis [Recovered/Resolved]
  - Rhabdomyolysis [Unknown]
  - Blood magnesium decreased [Unknown]
  - Blood creatine phosphokinase increased [Recovering/Resolving]

NARRATIVE: CASE EVENT DATE: 20170413
